FAERS Safety Report 24299726 (Version 1)
Quarter: 2024Q3

REPORT INFORMATION
  Report Type: Spontaneous
  Country: US (occurrence: None)
  Receive Date: 20240908
  Receipt Date: 20240908
  Transmission Date: 20241017
  Serious: No
  Sender: Public
  Company Number: None

PATIENT
  Age: 5 Year
  Sex: Male
  Weight: 15.75 kg

DRUGS (1)
  1. WART REMOVER STRIPS [Suspect]
     Active Substance: SALICYLIC ACID
     Indication: Skin papilloma
     Dosage: 10 PATCHES
     Dates: start: 20240731, end: 20240906

REACTIONS (1)
  - Product dispensing error [None]
